FAERS Safety Report 9916414 (Version 1)
Quarter: 2014Q1

REPORT INFORMATION
  Report Type: Spontaneous
  Country: FR (occurrence: FR)
  Receive Date: 20140221
  Receipt Date: 20140221
  Transmission Date: 20141002
  Serious: Yes (Hospitalization)
  Sender: FDA-Public Use
  Company Number: FR-009507513-1402FRA005549

PATIENT
  Sex: Male
  Weight: 58 kg

DRUGS (2)
  1. SINEMET UNSCORED TABLET [Suspect]
     Indication: PARKINSON^S DISEASE
     Dosage: UNK
     Route: 048
  2. SINEMET L.P. [Suspect]
     Indication: PARKINSON^S DISEASE
     Route: 048

REACTIONS (1)
  - Intestinal obstruction [Unknown]
